FAERS Safety Report 20830058 (Version 1)
Quarter: 2022Q2

REPORT INFORMATION
  Report Type: Spontaneous
  Country: FR (occurrence: FR)
  Receive Date: 20220514
  Receipt Date: 20220514
  Transmission Date: 20220720
  Serious: Yes (Death, Other)
  Sender: FDA-Public Use
  Company Number: FR-AMGEN-FRASP2022078208

PATIENT

DRUGS (1)
  1. XGEVA [Suspect]
     Active Substance: DENOSUMAB
     Indication: Metastases to bone
     Dosage: UNK
     Route: 065

REACTIONS (34)
  - Acute promyelocytic leukaemia [Fatal]
  - Acute myeloid leukaemia [Fatal]
  - Thyroid cancer metastatic [Fatal]
  - Chronic myeloid leukaemia [Unknown]
  - Febrile neutropenia [Unknown]
  - Neutropenia [Unknown]
  - Leukopenia [Unknown]
  - Thrombocytopenia [Unknown]
  - Lymphopenia [Unknown]
  - Abscess [Unknown]
  - Pain [Unknown]
  - Gamma-glutamyltransferase increased [Unknown]
  - Myalgia [Unknown]
  - Viral infection [Unknown]
  - Incontinence [Unknown]
  - Blood bilirubin increased [Unknown]
  - Blood creatinine increased [Unknown]
  - Adverse event [Unknown]
  - Hypertriglyceridaemia [Unknown]
  - Hyperuricaemia [Unknown]
  - Inguinal hernia [Unknown]
  - Paraesthesia [Unknown]
  - Rash pustular [Unknown]
  - Tachycardia [Unknown]
  - Blood urea increased [Unknown]
  - Vertigo [Unknown]
  - General physical condition abnormal [Unknown]
  - Decreased appetite [Unknown]
  - Anaemia [Unknown]
  - Nausea [Unknown]
  - Asthenia [Unknown]
  - Diarrhoea [Unknown]
  - Constipation [Unknown]
  - Bone pain [Unknown]
